FAERS Safety Report 6179672-X (Version None)
Quarter: 2009Q2

REPORT INFORMATION
  Report Type: 
  Country: None (occurrence: None)
  Receive Date: 20090505
  Receipt Date: 20090427
  Transmission Date: 20091009
  Serious: Yes (Other)
  Sender: FDA-Public Use
  Company Number: PHHY2009FR16302

PATIENT
  Age: 38 Year
  Sex: Female

DRUGS (7)
  1. TRILEPTAL [Suspect]
     Indication: AFFECTIVE DISORDER
     Dosage: 600 MG, BID
     Route: 048
     Dates: start: 20090101
  2. TRILEPTAL [Suspect]
     Dosage: 900 MG DAILY
     Route: 048
  3. TRILEPTAL [Suspect]
     Dosage: 600 MG, BID
     Route: 048
  4. PROZAC [Concomitant]
     Dosage: UNK
     Dates: start: 20090101
  5. ALPRAZOLAM [Concomitant]
     Dosage: UNK
     Dates: start: 20090101
  6. STILNOX                                 /FRA/ [Concomitant]
     Dosage: UNK
     Dates: start: 20090101
  7. MEPRONIZINE [Concomitant]
     Dosage: UNK
     Dates: start: 20090101

REACTIONS (7)
  - BURNING SENSATION [None]
  - ORAL HERPES [None]
  - PHOTOSENSITIVITY REACTION [None]
  - PIGMENTATION DISORDER [None]
  - RASH [None]
  - SKIN EXFOLIATION [None]
  - WEIGHT INCREASED [None]
